FAERS Safety Report 5638006-7 (Version None)
Quarter: 2008Q1

REPORT INFORMATION
  Report Type: 
  Country: None (occurrence: None)
  Receive Date: 20080222
  Receipt Date: 20080222
  Transmission Date: 20080703
  Serious: Yes (Other)
  Sender: FDA-Public Use
  Company Number: None

PATIENT
  Age: 76 Year
  Sex: Male
  Weight: 89.2225 kg

DRUGS (2)
  1. OMNIPAQUE 350 [Suspect]
     Indication: CATHETERISATION CARDIAC
     Dosage: 160ML ONE TIME IV
     Route: 042
     Dates: start: 20080218, end: 20080218
  2. OMNIPAQUE 350 [Suspect]

REACTIONS (6)
  - APHASIA [None]
  - CONFUSIONAL STATE [None]
  - DYSARTHRIA [None]
  - FACIAL PALSY [None]
  - MUSCULAR WEAKNESS [None]
  - POST PROCEDURAL COMPLICATION [None]
